FAERS Safety Report 17092471 (Version 1)
Quarter: 2019Q4

REPORT INFORMATION
  Report Type: Spontaneous
  Country: JP (occurrence: JP)
  Receive Date: 20191129
  Receipt Date: 20191129
  Transmission Date: 20200122
  Serious: Yes (Other)
  Sender: FDA-Public Use
  Company Number: JP-PFIZER INC-2019508360

PATIENT
  Age: 77 Year

DRUGS (7)
  1. CYMBALTA [Concomitant]
     Active Substance: DULOXETINE HYDROCHLORIDE
     Dosage: UNK
  2. REFLEX [Concomitant]
     Active Substance: MIRTAZAPINE
     Dosage: UNK
  3. PYRIDOXAL [Concomitant]
     Active Substance: PYRIDOXAL
     Dosage: UNK
     Route: 048
  4. VIBRAMYCIN [Suspect]
     Active Substance: DOXYCYCLINE
     Dosage: UNK
     Route: 048
  5. MYSLEE [Concomitant]
     Active Substance: ZOLPIDEM TARTRATE
     Dosage: UNK
  6. SILECE [Concomitant]
     Active Substance: FLUNITRAZEPAM
     Dosage: UNK
  7. FLAVINE ADENINE DINUCLEOTIDE [Concomitant]
     Dosage: UNK

REACTIONS (8)
  - Blood creatinine increased [Unknown]
  - Rosacea [Unknown]
  - Asthenia [Unknown]
  - Blood pressure increased [Recovering/Resolving]
  - Diarrhoea [Recovering/Resolving]
  - Renal impairment [Unknown]
  - Glomerular filtration rate decreased [Unknown]
  - Blood urea increased [Unknown]
